FAERS Safety Report 10299351 (Version 1)
Quarter: 2014Q3

REPORT INFORMATION
  Report Type: Spontaneous
  Country: US (occurrence: US)
  Receive Date: 20140711
  Receipt Date: 20140711
  Transmission Date: 20150326
  Serious: No
  Sender: FDA-Public Use
  Company Number: US-GILEAD-2013-0081452

PATIENT
  Sex: Female

DRUGS (4)
  1. REVATIO [Concomitant]
     Active Substance: SILDENAFIL CITRATE
  2. VENTAVIS [Concomitant]
     Active Substance: ILOPROST
  3. LETAIRIS [Suspect]
     Active Substance: AMBRISENTAN
     Indication: PRODUCT USED FOR UNKNOWN INDICATION
     Dosage: 10 MG, QD
     Route: 048
     Dates: start: 20110923
  4. CIPRO                              /00697201/ [Concomitant]
     Active Substance: CIPROFLOXACIN

REACTIONS (3)
  - Urinary tract infection [Unknown]
  - Pollakiuria [Unknown]
  - Dysuria [Unknown]
